FAERS Safety Report 10227654 (Version 1)
Quarter: 2014Q2

REPORT INFORMATION
  Report Type: Spontaneous
  Country: CN (occurrence: CN)
  Receive Date: 20140610
  Receipt Date: 20140610
  Transmission Date: 20141212
  Serious: Yes (Other)
  Sender: FDA-Public Use
  Company Number: CN-ASTRAZENECA-2014SE40125

PATIENT
  Age: 25209 Day
  Sex: Male

DRUGS (1)
  1. BUDESONIDE [Suspect]
     Indication: BRONCHOSPASM
     Route: 055
     Dates: start: 20130812, end: 20130812

REACTIONS (4)
  - Chest discomfort [Recovering/Resolving]
  - Dyspnoea [Recovering/Resolving]
  - Nausea [Recovering/Resolving]
  - Vomiting [Recovering/Resolving]
